FAERS Safety Report 7250986-5 (Version None)
Quarter: 2011Q1

REPORT INFORMATION
  Report Type: 
  Country: None (occurrence: None)
  Receive Date: 20110128
  Receipt Date: 20110120
  Transmission Date: 20110831
  Serious: Yes (Other)
  Sender: FDA-Public Use
  Company Number: B0689678A

PATIENT
  Sex: Female

DRUGS (11)
  1. ZELITREX [Suspect]
     Route: 048
  2. INIPOMP [Suspect]
     Dosage: 40MG PER DAY
     Route: 048
  3. SEROPLEX [Suspect]
     Indication: DEPRESSION
     Route: 048
  4. SPECIAFOLDINE [Suspect]
     Route: 048
  5. FOSAMAX [Suspect]
     Dosage: 70MG WEEKLY
     Route: 048
  6. CORTANCYL [Suspect]
     Dosage: 70MG PER DAY
     Route: 048
     Dates: start: 20090701
  7. FEMARA [Suspect]
     Indication: BREAST CANCER
     Dosage: 2.5MG UNKNOWN
     Route: 048
  8. METHOTREXATE [Suspect]
     Dosage: 10MG WEEKLY
     Route: 042
  9. APROVEL [Suspect]
     Route: 048
  10. PLAQUENIL [Suspect]
     Dosage: 200MG TWICE PER DAY
     Route: 048
     Dates: start: 20090501, end: 20101001
  11. CACIT VITAMINE D3 [Suspect]
     Route: 048

REACTIONS (3)
  - CATARACT [None]
  - VISION BLURRED [None]
  - PHOTOPHOBIA [None]
